FAERS Safety Report 14239549 (Version 1)
Quarter: 2017Q4

REPORT INFORMATION
  Report Type: Spontaneous
  Country: US (occurrence: US)
  Receive Date: 20171128
  Receipt Date: 20171128
  Transmission Date: 20180321
  Serious: Yes (Death, Life-Threatening, Hospitalization, Disabling)
  Sender: FDA-Public Use
  Company Number: None

PATIENT
  Sex: Male
  Weight: 72 kg

DRUGS (1)
  1. INVOKANA [Suspect]
     Active Substance: CANAGLIFLOZIN
     Indication: PRODUCT USED FOR UNKNOWN INDICATION
     Route: 048
     Dates: start: 20150901, end: 20170703

REACTIONS (8)
  - Diarrhoea [None]
  - Abdominal distension [None]
  - Abscess [None]
  - Vomiting [None]
  - Abscess limb [None]
  - Portal hypertension [None]
  - Condition aggravated [None]
  - Cirrhosis alcoholic [None]

NARRATIVE: CASE EVENT DATE: 20160601
